FAERS Safety Report 21885839 (Version 1)
Quarter: 2023Q1

REPORT INFORMATION
  Report Type: Spontaneous
  Country: US (occurrence: US)
  Receive Date: 20230119
  Receipt Date: 20230119
  Transmission Date: 20230417
  Serious: Yes (Life-Threatening, Other)
  Sender: FDA-Public Use
  Company Number: US-PFIZER INC-202300021539

PATIENT
  Age: 62 Year
  Sex: Female
  Weight: 71.67 kg

DRUGS (7)
  1. PAXLOVID [Interacting]
     Active Substance: NIRMATRELVIR\RITONAVIR
     Indication: COVID-19 treatment
     Dosage: UNK, 2X/DAY (1 TWICE A DAY)
     Dates: start: 20221222, end: 20221227
  2. TASIGNA [Interacting]
     Active Substance: NILOTINIB
     Indication: Chronic myeloid leukaemia
     Dosage: 200 MG, DAILY (IN THE MORNING)
     Dates: start: 2009, end: 20221227
  3. TASIGNA [Interacting]
     Active Substance: NILOTINIB
     Dosage: 200 MG, DAILY (IN THE MORNING)
     Dates: start: 20221229, end: 20230103
  4. HYALURONIC ACID [ASCORBIC ACID;HYALURONIC ACID] [Concomitant]
     Indication: Arthropathy
     Dosage: UNK
  5. VITAMIN B COMPLEX [Concomitant]
     Active Substance: CYANOCOBALAMIN\DEXPANTHENOL\NIACINAMIDE\PYRIDOXINE HYDROCHLORIDE\RIBOFLAVIN 5^-PHOSPHATE SODIUM\THIA
     Indication: Hair disorder
     Dosage: UNK
  6. VITAMIN B COMPLEX [Concomitant]
     Active Substance: CYANOCOBALAMIN\DEXPANTHENOL\NIACINAMIDE\PYRIDOXINE HYDROCHLORIDE\RIBOFLAVIN 5^-PHOSPHATE SODIUM\THIA
     Indication: Skin disorder
  7. VITAMIN B COMPLEX [Concomitant]
     Active Substance: CYANOCOBALAMIN\DEXPANTHENOL\NIACINAMIDE\PYRIDOXINE HYDROCHLORIDE\RIBOFLAVIN 5^-PHOSPHATE SODIUM\THIA
     Indication: Nail disorder

REACTIONS (14)
  - Hypertension [Unknown]
  - Pruritus [Not Recovered/Not Resolved]
  - Rash [Unknown]
  - Eyelid oedema [Not Recovered/Not Resolved]
  - Face oedema [Not Recovered/Not Resolved]
  - Musculoskeletal stiffness [Unknown]
  - Urticaria [Unknown]
  - Vision blurred [Unknown]
  - Asthenopia [Unknown]
  - Pain in extremity [Recovered/Resolved]
  - Neck pain [Recovered/Resolved]
  - Drug interaction [Unknown]
  - Hypersensitivity [Not Recovered/Not Resolved]
  - Nausea [Unknown]

NARRATIVE: CASE EVENT DATE: 20230101
